FAERS Safety Report 8775340 (Version 7)
Quarter: 2013Q4

REPORT INFORMATION
  Report Type: Report from Study
  Country: JP (occurrence: JP)
  Receive Date: 20120910
  Receipt Date: 20131113
  Transmission Date: 20140711
  Serious: Yes (Hospitalization)
  Sender: FDA-Public Use
  Company Number: JP-VERTEX PHARMACEUTICAL INC.-AE-2012-005408

PATIENT
  Age: 54 Year
  Sex: Male

DRUGS (70)
  1. REBETOL [Suspect]
     Dosage: 400 MG, QD
     Route: 048
     Dates: start: 20120420, end: 20120424
  2. VOLTAREN [Concomitant]
     Dosage: 175 MG, QD
     Route: 054
     Dates: start: 20120221, end: 20120221
  3. LOXONIN [Concomitant]
     Dosage: 60 MG, QD
     Route: 048
     Dates: start: 20120222, end: 20120301
  4. LOXONIN [Concomitant]
     Dosage: 120 MG, QD
     Route: 048
     Dates: start: 20120302, end: 20120302
  5. LOXONIN [Concomitant]
     Dosage: 60 MG, QD
     Route: 048
     Dates: start: 20120303, end: 20120311
  6. LOXONIN [Concomitant]
     Dosage: 60 MG, QD
     Route: 048
     Dates: start: 20120306, end: 20120315
  7. LOXONIN [Concomitant]
     Dosage: 60 MG, QD
     Route: 048
     Dates: start: 20120413, end: 20120422
  8. POSTERISAN [Concomitant]
     Dosage: 10 G, QD
     Route: 054
     Dates: start: 20120225, end: 20120225
  9. FULMETA [Concomitant]
     Dosage: 5 G, QD
     Route: 061
     Dates: start: 20120227, end: 20120227
  10. FULMETA [Concomitant]
     Dosage: 10 G, QD
     Route: 061
     Dates: start: 20120301, end: 20120301
  11. FULMETA [Concomitant]
     Dosage: 10 G, QD
     Route: 061
     Dates: start: 20120306, end: 20120306
  12. FULMETA [Concomitant]
     Dosage: 10 G, QD
     Route: 061
     Dates: start: 20120313, end: 20120313
  13. FULMETA [Concomitant]
     Dosage: 10 G, QD
     Route: 061
     Dates: start: 20120321, end: 20120321
  14. FULMETA [Concomitant]
     Dosage: 10 G, QD
     Route: 061
     Dates: start: 20120328, end: 20120328
  15. FULMETA [Concomitant]
     Dosage: 5 G, QD
     Route: 061
     Dates: start: 20120411, end: 20120411
  16. FULMETA [Concomitant]
     Dosage: 15 G, QD
     Route: 061
     Dates: start: 20120413, end: 20120413
  17. FULMETA [Concomitant]
     Dosage: 10 G, QD
     Route: 061
  18. TALION [Concomitant]
     Dosage: 20 MG, QD
     Route: 048
     Dates: start: 20120227, end: 20120412
  19. TALION [Concomitant]
     Dosage: 40 MG, QD
     Route: 048
     Dates: start: 20120413, end: 20120422
  20. TALION [Concomitant]
     Dosage: 20 MG, QD
     Route: 048
  21. TAVEGYL [Concomitant]
     Dosage: 2 G, QD
     Route: 048
     Dates: start: 20120301, end: 20120412
  22. TAVEGYL [Concomitant]
     Dosage: 2 MG, QD
     Route: 048
     Dates: start: 20120301
  23. TAVEGYL [Concomitant]
     Dosage: 4 G, QD
     Route: 048
     Dates: start: 20120413, end: 20120422
  24. TAVEGYL [Concomitant]
     Dosage: 4 G, QD
     Route: 048
     Dates: start: 20120424, end: 20120425
  25. TAVEGYL [Concomitant]
     Dosage: 2 MG, QD
     Route: 048
  26. ATARAX-P [Concomitant]
     Dosage: 0.75 MG, QD
     Route: 048
     Dates: start: 20120313, end: 20120320
  27. ATARAX-P [Concomitant]
     Dosage: 1.5 G, QD
     Route: 048
     Dates: start: 20120321, end: 20120422
  28. ATARAX-P [Concomitant]
     Dosage: 1.5 G, QD
     Route: 048
     Dates: start: 20120424, end: 20120425
  29. ATARAX-P [Concomitant]
     Dosage: 150 MG, QD
     Route: 048
  30. CELECOX [Concomitant]
     Dosage: 100 MG, QD
     Route: 048
     Dates: start: 20120313, end: 20120320
  31. CELECOX [Concomitant]
     Dosage: 200 MG, QD
     Route: 048
     Dates: start: 20120321, end: 20120322
  32. CELECOX [Concomitant]
     Dosage: 100 MG, QD
     Route: 048
     Dates: start: 20120323, end: 20120327
  33. CELECOX [Concomitant]
     Dosage: 200 MG, QD
     Route: 048
     Dates: start: 20120328, end: 20120330
  34. CELECOX [Concomitant]
     Dosage: 100 MG, QD
     Route: 048
     Dates: start: 20120331, end: 20120403
  35. CELECOX [Concomitant]
     Dosage: 200 MG, QD
     Route: 048
     Dates: start: 20120404, end: 20120406
  36. CELECOX [Concomitant]
     Dosage: 100 MG, QD
     Route: 048
     Dates: start: 20120407, end: 20120413
  37. HIRUDOID [Concomitant]
     Dosage: 20 G, QD
     Route: 061
     Dates: start: 20120321, end: 20120321
  38. HIRUDOID [Concomitant]
     Dosage: 20 G, QD
     Route: 061
     Dates: start: 20120328, end: 20120328
  39. HIRUDOID [Concomitant]
     Dosage: 20 G, QD
     Route: 061
     Dates: start: 20120411, end: 20120411
  40. HIRUDOID [Concomitant]
     Dosage: 20 G, QD
     Route: 061
  41. PETROLATUM SALICYLATE [Concomitant]
     Dosage: 20 G, QD
     Route: 061
     Dates: start: 20120321, end: 20120321
  42. PETROLATUM SALICYLATE [Concomitant]
     Dosage: 20 G, QD
     Route: 061
     Dates: start: 20120328, end: 20120328
  43. PETROLATUM SALICYLATE [Concomitant]
     Dosage: 20 G, QD
     Route: 061
  44. ZYLORIC [Concomitant]
     Dosage: 2 DF, QD
     Route: 048
     Dates: start: 20120404, end: 20120410
  45. FUNGIZONE [Concomitant]
     Dosage: 1 DF, QD
     Route: 048
     Dates: start: 20120411, end: 20120411
  46. ISODINE [Concomitant]
     Dosage: 1 DF, QD
     Route: 049
     Dates: start: 20120411, end: 20120411
  47. BAKTAR [Concomitant]
     Dosage: 2 DF, QD
     Route: 048
     Dates: start: 20120412, end: 20120415
  48. BAKTAR [Concomitant]
     Dosage: 1 DF, QD
     Route: 048
     Dates: start: 20120420, end: 20120425
  49. POLYMYXIN [Concomitant]
     Dosage: 3 DF, QD
     Route: 048
     Dates: start: 20120411, end: 20120415
  50. CRAVIT [Concomitant]
     Dosage: 500 MG, QD
     Route: 048
     Dates: start: 20120415, end: 20120417
  51. NERISONA [Concomitant]
     Dosage: 40 G, QD
     Route: 061
     Dates: start: 20120416, end: 20120416
  52. NERISONA [Concomitant]
     Dosage: 80 G, QD
     Route: 061
     Dates: start: 20120421, end: 20120421
  53. PREDNISOLONE [Concomitant]
     Dosage: 30 MG, QD
     Route: 048
     Dates: start: 20120418, end: 20120425
  54. TAKEPRON [Concomitant]
     Dosage: 1 DF, QD
     Route: 048
     Dates: start: 20120418, end: 20120418
  55. TAKEPRON [Concomitant]
     Dosage: 2 DF, QD
     Route: 048
     Dates: start: 20120419, end: 20120419
  56. TAKEPRON [Concomitant]
     Dosage: 1 DF, QD
     Route: 048
     Dates: start: 20120420, end: 20120421
  57. TAKEPRON [Concomitant]
     Dosage: 1 DF, QD
     Route: 048
     Dates: start: 20120424, end: 20120425
  58. TAKEPRON [Concomitant]
     Dosage: 1 DF, QD
     Route: 048
     Dates: start: 20120516, end: 20120601
  59. LENDORMIN [Concomitant]
     Indication: INSOMNIA
     Dosage: 0.25 MG, QD
     Route: 048
     Dates: start: 20120420, end: 20120422
  60. MYSLEE [Concomitant]
     Indication: INSOMNIA
     Dosage: 5 MG, QD
     Route: 048
     Dates: start: 20120423, end: 20120424
  61. DERMOVATE [Concomitant]
     Dosage: 50 G, QD
     Route: 061
     Dates: start: 20120424, end: 20120424
  62. WHITE PETROLATUM [Concomitant]
     Dosage: 50 G, QD
     Route: 061
     Dates: start: 20120424, end: 20120424
  63. ALLELOCK [Concomitant]
     Dosage: 4 DF, QD
     Route: 048
     Dates: start: 20120424, end: 20120425
  64. URSO [Concomitant]
     Dosage: 600 MG, QD
     Route: 048
     Dates: start: 20120518
  65. BENET [Concomitant]
     Dosage: 17.5 MG, QD
     Route: 048
     Dates: start: 20120518, end: 20120519
  66. VX-950 (TELAPREVIR) [Suspect]
     Indication: CHRONIC HEPATITIS C
     Dosage: 2250 MG, QD
     Route: 048
     Dates: start: 20120221, end: 20120410
  67. PEGINTRON [Suspect]
     Indication: CHRONIC HEPATITIS C
     Dosage: 1.5 ?G/KG, QW
     Route: 058
     Dates: start: 20120221, end: 20120404
  68. PEGINTRON [Suspect]
     Dosage: 1.5 ?G/KG, QW
     Route: 058
     Dates: start: 20120420, end: 20120518
  69. REBETOL [Suspect]
     Indication: CHRONIC HEPATITIS C
     Dosage: 600 MG, QD
     Route: 048
     Dates: start: 20120221, end: 20120312
  70. REBETOL [Suspect]
     Dosage: 400 MG, QD
     Route: 048
     Dates: start: 20120313, end: 20120410

REACTIONS (2)
  - Toxic skin eruption [Recovered/Resolved]
  - Neutropenia [Recovered/Resolved]
